FAERS Safety Report 9168802 (Version 3)
Quarter: 2013Q2

REPORT INFORMATION
  Report Type: Spontaneous
  Country: FR (occurrence: FR)
  Receive Date: 20130318
  Receipt Date: 20130606
  Transmission Date: 20140414
  Serious: Yes (Hospitalization)
  Sender: FDA-Public Use
  Company Number: FR-EISAI INC-E3810-06305-SPO-FR

PATIENT
  Age: 93 Year
  Sex: Male

DRUGS (13)
  1. ACIPHEX (RABEPRAZOLE) [Suspect]
     Dosage: UNKNOWN
     Route: 048
     Dates: start: 20121026, end: 20121212
  2. RABEPRAZOLE ZYDUS [Suspect]
     Dosage: UNKNOWN
     Route: 048
     Dates: start: 20121212, end: 20130110
  3. RABEPRAZOLE ZENTIVA [Suspect]
     Dosage: UNKNOWN
     Route: 048
     Dates: start: 20130110, end: 20130201
  4. APROVEL [Concomitant]
     Dosage: UNKNOWN
     Route: 065
  5. PERMIXON [Concomitant]
     Dosage: UNKNOWN
     Route: 065
  6. XATRAL [Concomitant]
     Dosage: UNKNOWN
     Route: 065
  7. INTETRIX [Concomitant]
     Dosage: UNKNOWN
     Route: 065
  8. ISOPTINE [Concomitant]
     Dosage: UNKNOWN
     Route: 065
  9. XANAX [Concomitant]
     Dosage: UNKNOWN
     Route: 065
  10. ANAFRANIL [Concomitant]
     Dosage: UNKNOWN
     Route: 065
  11. TEMESTA [Concomitant]
     Dosage: UNKNOWN
     Route: 065
  12. PLAVIX [Concomitant]
     Dosage: UNKNOWN
     Route: 065
  13. TRANSIPEG [Concomitant]
     Dosage: UNKNOWN
     Route: 065

REACTIONS (2)
  - Pruritus [Not Recovered/Not Resolved]
  - Rash papular [Not Recovered/Not Resolved]
